FAERS Safety Report 5885775-7 (Version None)
Quarter: 2008Q3

REPORT INFORMATION
  Report Type: 
  Country: None (occurrence: None)
  Receive Date: 20080916
  Receipt Date: 20080908
  Transmission Date: 20090109
  Serious: Yes (Hospitalization)
  Sender: FDA-Public Use
  Company Number: US-ELI_LILLY_AND_COMPANY-US200808003699

PATIENT
  Sex: Female
  Weight: 124.26 kg

DRUGS (3)
  1. BYETTA [Suspect]
     Indication: TYPE 2 DIABETES MELLITUS
     Dosage: 5 UG, 2/D
     Route: 058
     Dates: start: 20050101, end: 20050101
  2. BYETTA [Suspect]
     Dosage: 10 UG, 2/D
     Route: 058
     Dates: start: 20050101
  3. GLIPIZIDE [Concomitant]
     Indication: TYPE 2 DIABETES MELLITUS

REACTIONS (8)
  - CONSTIPATION [None]
  - DEHYDRATION [None]
  - DIZZINESS [None]
  - INTESTINAL OBSTRUCTION [None]
  - NASOPHARYNGITIS [None]
  - NAUSEA [None]
  - WEIGHT DECREASED [None]
  - WHITE BLOOD CELL COUNT INCREASED [None]
